FAERS Safety Report 7514846-4 (Version None)
Quarter: 2011Q2

REPORT INFORMATION
  Report Type: 
  Country: None (occurrence: None)
  Receive Date: 20110526
  Receipt Date: 20110526
  Transmission Date: 20111010
  Serious: Yes (Hospitalization)
  Sender: FDA-Public Use
  Company Number: None

PATIENT
  Sex: Male
  Weight: 51 kg

DRUGS (2)
  1. TARCEVA [Suspect]
     Dosage: 3000 MG
     Dates: start: 20110524
  2. TARCEVA [Suspect]
     Dosage: 3000 MG
     Dates: end: 20110510

REACTIONS (5)
  - FATIGUE [None]
  - FAILURE TO THRIVE [None]
  - PERFORMANCE STATUS DECREASED [None]
  - MALAISE [None]
  - DECREASED APPETITE [None]
